FAERS Safety Report 7994702-8 (Version None)
Quarter: 2011Q4

REPORT INFORMATION
  Report Type: 
  Country: None (occurrence: None)
  Receive Date: 20111220
  Receipt Date: 20111212
  Transmission Date: 20120403
  Serious: Yes (Other)
  Sender: FDA-Public Use
  Company Number: US-US-EMD SERONO, INC.-7017240

PATIENT
  Sex: Female
  Weight: 82 kg

DRUGS (9)
  1. MULTI-VITAMIN [Concomitant]
  2. ASPIRIN [Concomitant]
  3. REBIF [Suspect]
     Indication: MULTIPLE SCLEROSIS
     Route: 058
     Dates: start: 20090310
  4. PROVIGIL [Concomitant]
     Indication: FATIGUE
  5. IBUPROFEN (ADVIL) [Concomitant]
     Indication: PREMEDICATION
  6. NEURONTIN [Concomitant]
     Indication: HYPOAESTHESIA
  7. NAPROXEN (ALEVE) [Concomitant]
     Indication: PREMEDICATION
  8. NEURONTIN [Concomitant]
     Indication: PARAESTHESIA
  9. LEXAPRO [Concomitant]
     Indication: DEPRESSION

REACTIONS (17)
  - GLUCOSE TOLERANCE IMPAIRED [None]
  - HEPATIC STEATOSIS [None]
  - INJECTION SITE ERYTHEMA [None]
  - INJECTION SITE RASH [None]
  - BLOOD CHOLESTEROL INCREASED [None]
  - SCARLET FEVER [None]
  - SINUSITIS [None]
  - BLADDER DISORDER [None]
  - MYALGIA [None]
  - INJECTION SITE HAEMATOMA [None]
  - GOITRE [None]
  - ADRENAL NEOPLASM [None]
  - EAR INFECTION [None]
  - PARAESTHESIA [None]
  - BLINDNESS [None]
  - OVARIAN CYST [None]
  - VOMITING [None]
